FAERS Safety Report 9854252 (Version 1)
Quarter: 2014Q1

REPORT INFORMATION
  Report Type: Spontaneous
  Country: US (occurrence: US)
  Receive Date: 20140130
  Receipt Date: 20140130
  Transmission Date: 20141002
  Serious: Yes (Death)
  Sender: FDA-Public Use
  Company Number: US-BEH-2014040304

PATIENT
  Age: 73 Year
  Sex: Male

DRUGS (6)
  1. IVIG [Suspect]
     Indication: FLAVIVIRUS TEST POSITIVE
     Dosage: 400MG/KG ON DAYS 6,8 AND 10
     Route: 042
  2. VANCOMYCIN [Concomitant]
  3. MEROPENEM [Concomitant]
  4. VORICONAZOLE [Concomitant]
  5. TACROLIMUS [Concomitant]
     Indication: IMMUNOSUPPRESSION
     Dosage: 1MG TWICE DAILY (TROUGH:4-6 NG/ML)
  6. PREDNISONE [Concomitant]
     Indication: IMMUNOSUPPRESSION
     Route: 048

REACTIONS (1)
  - Drug ineffective for unapproved indication [Fatal]
